FAERS Safety Report 5427689-2 (Version None)
Quarter: 2007Q3

REPORT INFORMATION
  Report Type: 
  Country: None (occurrence: None)
  Receive Date: 20070828
  Receipt Date: 20070817
  Transmission Date: 20080115
  Serious: Yes (Other)
  Sender: FDA-Public Use
  Company Number: US-ROCHE-513174

PATIENT
  Sex: Male

DRUGS (3)
  1. SAQUINAVIR [Suspect]
     Indication: DRUG USE FOR UNKNOWN INDICATION
  2. ALCOHOL [Concomitant]
  3. ANTIBIOTIC NOS [Concomitant]

REACTIONS (2)
  - HEPATOMEGALY [None]
  - HYDROCELE [None]
